FAERS Safety Report 9465281 (Version 1)
Quarter: 2013Q3

REPORT INFORMATION
  Report Type: Spontaneous
  Country: GB (occurrence: GB)
  Receive Date: 20130819
  Receipt Date: 20130819
  Transmission Date: 20140515
  Serious: Yes (Death)
  Sender: FDA-Public Use
  Company Number: PHHY2013GB088520

PATIENT
  Age: 15 Year
  Sex: Male

DRUGS (4)
  1. BUPRENORPHINE [Suspect]
     Indication: DRUG ABUSE
     Route: 065
     Dates: start: 2011, end: 201106
  2. CODEINE PHOSPHATE [Suspect]
     Indication: DRUG ABUSE
     Route: 065
     Dates: start: 2011, end: 201106
  3. DIAZEPAM [Suspect]
     Indication: DRUG ABUSE
     Route: 065
     Dates: start: 2011, end: 201106
  4. ANTIDEPRESSANTS [Suspect]
     Indication: DRUG ABUSE
     Route: 065
     Dates: start: 2011, end: 201106

REACTIONS (1)
  - Toxicity to various agents [Fatal]
